FAERS Safety Report 12997863 (Version 1)
Quarter: 2016Q4

REPORT INFORMATION
  Report Type: Spontaneous
  Country: US (occurrence: US)
  Receive Date: 20161205
  Receipt Date: 20161205
  Transmission Date: 20170207
  Serious: No
  Sender: FDA-Public Use
  Company Number: US-MYLANLABS-2016M1002037

PATIENT
  Age: 53 Year
  Weight: 72.5 kg

DRUGS (1)
  1. DEXRAZOXANE FOR INJECTION [Suspect]
     Active Substance: DEXRAZOXANE
     Dosage: UNK
     Dates: start: 20151221, end: 20151221

REACTIONS (3)
  - Medication error [Recovered/Resolved]
  - No adverse event [None]
  - Product preparation error [None]

NARRATIVE: CASE EVENT DATE: 20151221
